FAERS Safety Report 5502163-3 (Version None)
Quarter: 2007Q4

REPORT INFORMATION
  Report Type: 
  Country: None (occurrence: None)
  Receive Date: 20071026
  Receipt Date: 20071023
  Transmission Date: 20080405
  Serious: Yes (Death)
  Sender: FDA-Public Use
  Company Number: 008-C5013-07101216

PATIENT
  Age: 61 Year
  Weight: 69 kg

DRUGS (4)
  1. CC-5013 (LENALIDOMIDE) (CAPSULES) [Suspect]
     Indication: MULTIPLE MYELOMA
     Dosage: ORAL
     Route: 048
     Dates: start: 20070905, end: 20070927
  2. DEXAMETHASONE TAB [Suspect]
     Indication: MULTIPLE MYELOMA
     Dosage: REDUCED BY ONE LEVEL
     Dates: start: 20070906, end: 20071003
  3. DEXAMETHASONE TAB [Suspect]
     Indication: MULTIPLE MYELOMA
     Dosage: REDUCED BY ONE LEVEL
     Dates: start: 20071004, end: 20071020
  4. AMITRIPTYLINE HCL [Concomitant]

REACTIONS (4)
  - BURNING SENSATION [None]
  - DYSAESTHESIA [None]
  - LOSS OF CONSCIOUSNESS [None]
  - RASH [None]
